FAERS Safety Report 5167087-2 (Version None)
Quarter: 2006Q4

REPORT INFORMATION
  Report Type: 
  Country: None (occurrence: None)
  Receive Date: 20061207
  Receipt Date: 20061128
  Transmission Date: 20070319
  Serious: Yes (Hospitalization)
  Sender: FDA-Public Use
  Company Number: US-GLAXOSMITHKLINE-A0628972A

PATIENT
  Sex: Female

DRUGS (1)
  1. VALTREX [Suspect]
     Indication: RETINITIS VIRAL
     Dosage: 1G THREE TIMES PER DAY
     Route: 048

REACTIONS (2)
  - CONVULSION [None]
  - LABILE BLOOD PRESSURE [None]
